FAERS Safety Report 5815695-5 (Version None)
Quarter: 2008Q3

REPORT INFORMATION
  Report Type: 
  Country: None (occurrence: None)
  Receive Date: 20080721
  Receipt Date: 20080716
  Transmission Date: 20090109
  Serious: Yes (Hospitalization)
  Sender: FDA-Public Use
  Company Number: GB-RANBAXY-2008RR-16368

PATIENT

DRUGS (1)
  1. ACETAMINOPHEN [Suspect]
     Indication: INTENTIONAL OVERDOSE
     Route: 048

REACTIONS (13)
  - ABDOMINAL PAIN UPPER [None]
  - ACUTE HEPATIC FAILURE [None]
  - AGGRESSION [None]
  - CONFUSIONAL STATE [None]
  - CONJUNCTIVAL HAEMORRHAGE [None]
  - HEPATIC ENCEPHALOPATHY [None]
  - INTENTIONAL OVERDOSE [None]
  - MECHANICAL VENTILATION [None]
  - NAUSEA [None]
  - PLATELET TRANSFUSION [None]
  - PURPURA [None]
  - SOMNOLENCE [None]
  - THROMBOCYTOPENIA [None]
